FAERS Safety Report 15609396 (Version 1)
Quarter: 2018Q4

REPORT INFORMATION
  Report Type: Spontaneous
  Country: US (occurrence: US)
  Receive Date: 20181112
  Receipt Date: 20181112
  Transmission Date: 20190205
  Serious: Yes (Other)
  Sender: FDA-Public Use
  Company Number: US-TEVA-2018-US-975426

PATIENT
  Age: 44 Year
  Sex: Male

DRUGS (1)
  1. CLONAZEPAM. [Suspect]
     Active Substance: CLONAZEPAM
     Indication: PANIC DISORDER
     Dosage: 2 MILLIGRAM DAILY;
     Route: 065

REACTIONS (6)
  - Seizure like phenomena [Unknown]
  - Tremor [Unknown]
  - Crying [Unknown]
  - Dyspnoea [Unknown]
  - Burnout syndrome [Unknown]
  - Nightmare [Unknown]
